APPROVED DRUG PRODUCT: NARATRIPTAN
Active Ingredient: NARATRIPTAN HYDROCHLORIDE
Strength: EQ 2.5MG BASE
Dosage Form/Route: TABLET;ORAL
Application: A202431 | Product #002
Applicant: AUROBINDO PHARMA USA INC
Approved: May 31, 2012 | RLD: No | RS: No | Type: DISCN